FAERS Safety Report 7591944 (Version 3)
Quarter: 2014Q1

REPORT INFORMATION
  Report Type: Report from Study
  Country: US (occurrence: US)
  Receive Date: 20100917
  Receipt Date: 20140304
  Transmission Date: 20141002
  Serious: Yes (Hospitalization)
  Sender: FDA-Public Use
  Company Number: US-ASTRAZENECA-2009SE23245

PATIENT
  Age: 73 Year
  Sex: Female
  Weight: 81.6 kg

DRUGS (44)
  1. SEROQUEL [Suspect]
     Indication: BIPOLAR DISORDER
     Route: 048
     Dates: start: 2007
  2. SEROQUEL [Suspect]
     Indication: SLEEP DISORDER
     Route: 048
     Dates: start: 2007
  3. SEROQUEL [Suspect]
     Indication: BIPOLAR DISORDER
     Route: 048
     Dates: start: 2008
  4. SEROQUEL [Suspect]
     Indication: SLEEP DISORDER
     Route: 048
     Dates: start: 2008
  5. SEROQUEL [Suspect]
     Indication: BIPOLAR DISORDER
     Route: 048
     Dates: end: 2010
  6. SEROQUEL [Suspect]
     Indication: SLEEP DISORDER
     Route: 048
     Dates: end: 2010
  7. SEROQUEL [Suspect]
     Indication: BIPOLAR DISORDER
     Route: 048
     Dates: start: 2010
  8. SEROQUEL [Suspect]
     Indication: SLEEP DISORDER
     Route: 048
     Dates: start: 2010
  9. SEROQUEL [Suspect]
     Indication: BIPOLAR DISORDER
     Route: 048
  10. SEROQUEL [Suspect]
     Indication: SLEEP DISORDER
     Route: 048
  11. SEROQUEL [Suspect]
     Indication: BIPOLAR DISORDER
     Route: 048
     Dates: start: 2013
  12. SEROQUEL [Suspect]
     Indication: SLEEP DISORDER
     Route: 048
     Dates: start: 2013
  13. SEROQUEL [Suspect]
     Indication: BIPOLAR DISORDER
     Route: 048
  14. SEROQUEL [Suspect]
     Indication: SLEEP DISORDER
     Route: 048
  15. NEXIUM [Suspect]
     Indication: GASTROOESOPHAGEAL REFLUX DISEASE
     Route: 048
     Dates: start: 2005
  16. NEXIUM [Suspect]
     Indication: PROPHYLAXIS AGAINST GASTROINTESTINAL ULCER
     Route: 048
     Dates: start: 2005
  17. NEXIUM [Suspect]
     Indication: GASTROOESOPHAGEAL REFLUX DISEASE
     Route: 048
     Dates: start: 2000, end: 20131223
  18. NEXIUM [Suspect]
     Indication: PROPHYLAXIS AGAINST GASTROINTESTINAL ULCER
     Route: 048
     Dates: start: 2000, end: 20131223
  19. PRILOSEC OTC [Suspect]
     Dosage: EVERY MORNING
     Route: 048
  20. PRILOSEC [Suspect]
     Route: 048
  21. TRICOR [Concomitant]
     Indication: CARDIAC DISORDER
     Dates: start: 1997
  22. TRICOR [Concomitant]
     Indication: BLOOD CHOLESTEROL INCREASED
     Dates: start: 1997
  23. LIPITOR [Concomitant]
     Indication: CARDIAC DISORDER
     Dates: start: 1997
  24. LIPITOR [Concomitant]
     Indication: BLOOD CHOLESTEROL INCREASED
     Dates: start: 1997
  25. BYSTOLIC [Concomitant]
     Indication: BLOOD PRESSURE ABNORMAL
     Dates: start: 201307
  26. ASPIRIN [Concomitant]
     Indication: ANTICOAGULANT THERAPY
     Dates: start: 1997
  27. FISH OIL [Concomitant]
     Indication: ARTERIAL DISORDER
     Dates: start: 1997
  28. ALL PURPOSE VITAMIN [Concomitant]
     Indication: VITAMIN SUPPLEMENTATION
  29. VITAMIN E [Concomitant]
     Indication: VITAMIN SUPPLEMENTATION
     Dosage: DAILY
     Dates: start: 2011
  30. VITAMIN D [Concomitant]
     Indication: VITAMIN SUPPLEMENTATION
     Dosage: DAILY
     Dates: start: 2011
  31. MELATONIN [Concomitant]
     Indication: SLEEP DISORDER
  32. MELATONIN [Concomitant]
     Indication: NERVOUS SYSTEM DISORDER
  33. KLONOPIN [Concomitant]
     Indication: BIPOLAR DISORDER
  34. TOPAMAX [Concomitant]
     Indication: AFFECTIVE DISORDER
     Dates: start: 2011
  35. TOPAMAX [Concomitant]
     Indication: BIPOLAR DISORDER
     Dates: start: 2011
  36. TOPAMAX [Concomitant]
     Indication: AFFECTIVE DISORDER
  37. TOPAMAX [Concomitant]
     Indication: BIPOLAR DISORDER
  38. METFORMIN [Concomitant]
     Indication: BLOOD GLUCOSE INCREASED
  39. GARLIC [Concomitant]
     Indication: ARTERIAL DISORDER
     Dates: start: 1997
  40. ESTRADIOL [Concomitant]
     Indication: HORMONE THERAPY
  41. SYNTHROID [Concomitant]
     Indication: THYROID DISORDER
  42. TRAMADOL [Concomitant]
     Indication: ARTHRITIS
  43. LASIX [Concomitant]
  44. STOOL SOFTENER [Concomitant]
     Dosage: DAILY

REACTIONS (15)
  - Mania [Unknown]
  - Blood glucose increased [Unknown]
  - Weight increased [Unknown]
  - Hypoacusis [Unknown]
  - Insomnia [Unknown]
  - Blood pressure increased [Unknown]
  - Eating disorder symptom [Unknown]
  - Weight decreased [Recovered/Resolved]
  - Gastric disorder [Recovering/Resolving]
  - Decreased appetite [Recovered/Resolved]
  - Fatigue [Recovered/Resolved]
  - Somnolence [Unknown]
  - Bipolar disorder [Unknown]
  - Drug dose omission [Unknown]
  - Drug ineffective [Unknown]
